FAERS Safety Report 7885741-6 (Version None)
Quarter: 2011Q4

REPORT INFORMATION
  Report Type: 
  Country: None (occurrence: None)
  Receive Date: 20111102
  Receipt Date: 20110627
  Transmission Date: 20120403
  Serious: No
  Sender: FDA-Public Use
  Company Number: US-AMGEN-USASP2011032821

PATIENT
  Sex: Male

DRUGS (1)
  1. ENBREL [Suspect]
     Indication: PSORIATIC ARTHROPATHY
     Dosage: UNK
     Dates: start: 20090501, end: 20110201

REACTIONS (8)
  - PSORIATIC ARTHROPATHY [None]
  - HAEMORRHAGE [None]
  - CELLULITIS [None]
  - INCREASED TENDENCY TO BRUISE [None]
  - PERTUSSIS [None]
  - LACERATION [None]
  - ARTHRALGIA [None]
  - PSORIASIS [None]
